FAERS Safety Report 6895390-4 (Version None)
Quarter: 2010Q3

REPORT INFORMATION
  Report Type: 
  Country: None (occurrence: None)
  Receive Date: 20100802
  Receipt Date: 20100722
  Transmission Date: 20110219
  Serious: Yes (Hospitalization)
  Sender: FDA-Public Use
  Company Number: FR-PFIZER INC-2010074724

PATIENT
  Age: 30 Year
  Sex: Male

DRUGS (7)
  1. TRIFLUCAN [Suspect]
     Indication: CANDIDA SEPSIS
     Dosage: 400 MG AFTER DIALYSIS
     Route: 042
     Dates: start: 20100518, end: 20100622
  2. PIPERACILLIN AND TAZOBACTAM [Suspect]
     Indication: BACTERIAL SEPSIS
     Dosage: 4 G, 2X/DAY
     Route: 042
     Dates: start: 20100518, end: 20100529
  3. NEXIUM [Concomitant]
     Dosage: 40 MG, 1X/DAY
  4. CACIT D3 [Concomitant]
     Dosage: 1 DF, 1X/DAY
  5. FUROSEMIDE [Concomitant]
     Dosage: 1500 MG DAILY DOSE
  6. SOMATOSTATIN [Concomitant]
     Dosage: UNK
     Dates: end: 20100522
  7. DIPEPTIVEN [Concomitant]

REACTIONS (19)
  - ANAEMIA [None]
  - COAGULOPATHY [None]
  - EFFUSION [None]
  - EPISTAXIS [None]
  - GASTROINTESTINAL STOMA COMPLICATION [None]
  - HAEMATOCHEZIA [None]
  - HAEMORRHAGE [None]
  - HEADACHE [None]
  - INFLAMMATION [None]
  - MUCOSAL DISCOLOURATION [None]
  - MUCOUS STOOLS [None]
  - PALLOR [None]
  - PLATELET AGGREGATION ABNORMAL [None]
  - PLATELET COUNT DECREASED [None]
  - SMALL INTESTINAL OBSTRUCTION [None]
  - SPLENOMEGALY [None]
  - THROMBOSIS [None]
  - WHITE BLOOD CELL COUNT DECREASED [None]
  - WOUND HAEMORRHAGE [None]
